FAERS Safety Report 6132959-9 (Version None)
Quarter: 2009Q1

REPORT INFORMATION
  Report Type: 
  Country: None (occurrence: None)
  Receive Date: 20090326
  Receipt Date: 20090320
  Transmission Date: 20090719
  Serious: Yes (Other)
  Sender: FDA-Public Use
  Company Number: PHEH2006US11382

PATIENT
  Sex: Female

DRUGS (4)
  1. ZOMETA [Suspect]
     Indication: LEIOMYOSARCOMA
     Dosage: UNK
     Dates: start: 20050101
  2. TIAZAC [Concomitant]
  3. DIOVAN [Concomitant]
  4. FEMARA [Concomitant]

REACTIONS (13)
  - ANXIETY [None]
  - BONE DISORDER [None]
  - DECREASED INTEREST [None]
  - DEFORMITY [None]
  - EMOTIONAL DISTRESS [None]
  - GENERAL PHYSICAL HEALTH DETERIORATION [None]
  - HYPOPHAGIA [None]
  - LIFE EXPECTANCY SHORTENED [None]
  - OSTEONECROSIS [None]
  - PAIN [None]
  - SINUSITIS [None]
  - TOOTH EXTRACTION [None]
  - TOOTH INFECTION [None]
